FAERS Safety Report 8307966-8 (Version None)
Quarter: 2012Q2

REPORT INFORMATION
  Report Type: 
  Country: None (occurrence: None)
  Receive Date: 20120424
  Receipt Date: 20120302
  Transmission Date: 20120825
  Serious: Yes (Other)
  Sender: FDA-Public Use
  Company Number: US-GLAXOSMITHKLINE-A0968404A

PATIENT
  Age: 45 Year
  Sex: Male

DRUGS (5)
  1. DIOVAN [Concomitant]
  2. UNSPECIFIED MEDICATION [Suspect]
  3. FLOVENT [Suspect]
     Indication: PRODUCT USED FOR UNKNOWN INDICATION
     Route: 065
  4. ALPRAZOLAM [Concomitant]
  5. ADVAIR DISKUS 100/50 [Suspect]
     Indication: ASTHMA
     Dosage: 1PUFF TWICE PER DAY
     Route: 055
     Dates: start: 20090301

REACTIONS (6)
  - THERAPEUTIC RESPONSE DECREASED [None]
  - CHEST DISCOMFORT [None]
  - ASTHMA [None]
  - DYSPHONIA [None]
  - DYSPNOEA [None]
  - PRODUCT QUALITY ISSUE [None]
